FAERS Safety Report 4516457-1 (Version None)
Quarter: 2004Q4

REPORT INFORMATION
  Report Type: 
  Country: None (occurrence: None)
  Receive Date: 20041202
  Receipt Date: 20040930
  Transmission Date: 20050328
  Serious: No
  Sender: FDA-Public Use
  Company Number: US-GLAXOSMITHKLINE-A0527958A

PATIENT
  Age: 53 Year
  Sex: Male

DRUGS (5)
  1. AUGMENTIN '125' [Suspect]
     Indication: ACUTE SINUSITIS
     Dosage: 1000MG TWICE PER DAY
     Route: 048
     Dates: start: 20040920, end: 20040925
  2. ACTOS [Concomitant]
  3. MAXZIDE [Concomitant]
  4. VALIUM [Concomitant]
  5. MULTIVITAMIN [Concomitant]

REACTIONS (1)
  - ABDOMINAL PAIN UPPER [None]
